FAERS Safety Report 17845142 (Version 1)
Quarter: 2020Q2

REPORT INFORMATION
  Report Type: Report from Study
  Country: BR (occurrence: BR)
  Receive Date: 20200601
  Receipt Date: 20200601
  Transmission Date: 20200714
  Serious: Yes (Other)
  Sender: FDA-Public Use
  Company Number: BR-AMGEN-BRASL2020085414

PATIENT
  Age: 68 Year
  Sex: Female

DRUGS (1)
  1. PROLIA [Suspect]
     Active Substance: DENOSUMAB
     Indication: BONE DISORDER
     Dosage: 60 MILLIGRAM, Q6MO
     Route: 058
     Dates: start: 201808, end: 201902

REACTIONS (2)
  - Tooth infection [Recovered/Resolved]
  - Post procedural swelling [Recovered/Resolved]

NARRATIVE: CASE EVENT DATE: 202001
